FAERS Safety Report 19699372 (Version 2)
Quarter: 2021Q4

REPORT INFORMATION
  Report Type: Spontaneous
  Country: US (occurrence: US)
  Receive Date: 20210813
  Receipt Date: 20211022
  Transmission Date: 20220304
  Serious: Yes (Hospitalization, Other)
  Sender: FDA-Public Use
  Company Number: US-BRISTOL-MYERS SQUIBB COMPANY-BMS-2021-077162

PATIENT
  Age: 63 Year
  Sex: Female

DRUGS (4)
  1. SPRYCEL [Suspect]
     Active Substance: DASATINIB
     Indication: Product used for unknown indication
     Dosage: 140 MILLIGRAM, QD
     Route: 048
  2. SPRYCEL [Suspect]
     Active Substance: DASATINIB
     Dosage: 100 MILLIGRAM, QD
     Route: 048
  3. SPRYCEL [Suspect]
     Active Substance: DASATINIB
     Dosage: 70MG, TAKE 2 TABLET BY MOUTH, ONCE DAILY
     Route: 048
  4. SPRYCEL [Suspect]
     Active Substance: DASATINIB
     Dosage: 40 MILLIGRAM, QD
     Route: 065

REACTIONS (5)
  - Pleural effusion [Unknown]
  - Pulmonary oedema [Unknown]
  - Infection [Unknown]
  - Diarrhoea [Unknown]
  - Weight decreased [Unknown]

NARRATIVE: CASE EVENT DATE: 20210101
